FAERS Safety Report 7448115-8 (Version None)
Quarter: 2011Q2

REPORT INFORMATION
  Report Type: 
  Country: None (occurrence: None)
  Receive Date: 20110429
  Receipt Date: 20100723
  Transmission Date: 20111010
  Serious: No
  Sender: FDA-Public Use
  Company Number: US-ASTRAZENECA-2009SE16834

PATIENT
  Age: 63 Year
  Sex: Male
  Weight: 77.1 kg

DRUGS (5)
  1. NEXIUM [Suspect]
     Route: 048
     Dates: start: 20090101
  2. NEXIUM [Suspect]
     Indication: ABDOMINAL PAIN UPPER
     Route: 048
     Dates: start: 20090101, end: 20090101
  3. PREVACID [Concomitant]
  4. NEXIUM [Suspect]
     Indication: ABDOMINAL DISTENSION
     Route: 048
     Dates: start: 20090101, end: 20090101
  5. NEXIUM [Suspect]
     Route: 048
     Dates: start: 20090101

REACTIONS (3)
  - PALPITATIONS [None]
  - DIARRHOEA [None]
  - DRUG EFFECT INCREASED [None]
